FAERS Safety Report 4824210-4 (Version None)
Quarter: 2005Q4

REPORT INFORMATION
  Report Type: 
  Country: None (occurrence: None)
  Receive Date: 20051108
  Receipt Date: 20051024
  Transmission Date: 20060501
  Serious: Yes (Other)
  Sender: FDA-Public Use
  Company Number: USA050394205

PATIENT
  Age: 81 Year
  Sex: Female
  Weight: 49 kg

DRUGS (7)
  1. FORTEO [Suspect]
     Indication: OSTEOPOROSIS
     Dosage: 20 UG/ 1 DAY
     Dates: start: 20050317
  2. ATENOLOL [Concomitant]
  3. CARDIZEM [Concomitant]
  4. ENALAPRIL [Concomitant]
  5. BUMEX [Concomitant]
  6. CARDURA [Concomitant]
  7. PRILOSEC [Concomitant]

REACTIONS (11)
  - BREAST ATROPHY [None]
  - BREAST DISORDER [None]
  - BREAST SWELLING [None]
  - FATIGUE [None]
  - HYPERSOMNIA [None]
  - LETHARGY [None]
  - PAIN [None]
  - PATHOLOGICAL FRACTURE [None]
  - PHARMACEUTICAL PRODUCT COMPLAINT [None]
  - SPINAL FRACTURE [None]
  - WRONG TECHNIQUE IN DRUG USAGE PROCESS [None]
